FAERS Safety Report 17210641 (Version 1)
Quarter: 2019Q4

REPORT INFORMATION
  Report Type: Spontaneous
  Country: US (occurrence: US)
  Receive Date: 20191227
  Receipt Date: 20191227
  Transmission Date: 20200122
  Serious: Yes (Hospitalization, Other)
  Sender: FDA-Public Use
  Company Number: US-TARO-2019TAR00851

PATIENT
  Age: 77 Year
  Sex: Male

DRUGS (3)
  1. FLUOCINONIDE. [Suspect]
     Active Substance: FLUOCINONIDE
  2. CALCIPOTRIENE. [Suspect]
     Active Substance: CALCIPOTRIENE
  3. XTANDI [Suspect]
     Active Substance: ENZALUTAMIDE
     Indication: PROSTATE CANCER METASTATIC
     Dosage: 160 MG, 1X/DAY
     Route: 048
     Dates: start: 20181004

REACTIONS (5)
  - Skin ulcer [Recovering/Resolving]
  - Pain in extremity [Recovering/Resolving]
  - Gait inability [Recovering/Resolving]
  - Rash macular [Recovering/Resolving]
  - Diabetic foot infection [Recovering/Resolving]

NARRATIVE: CASE EVENT DATE: 20190520
